FAERS Safety Report 23361970 (Version 1)
Quarter: 2024Q1

REPORT INFORMATION
  Report Type: Spontaneous
  Country: CO (occurrence: CO)
  Receive Date: 20240103
  Receipt Date: 20240103
  Transmission Date: 20240410
  Serious: Yes (Other)
  Sender: FDA-Public Use
  Company Number: CO-PFIZER INC-PV202300206189

PATIENT
  Age: 40 Year
  Sex: Female

DRUGS (1)
  1. RITUXIMAB [Suspect]
     Active Substance: RITUXIMAB
     Indication: Granulomatosis with polyangiitis
     Dosage: 375 MG/M2, WEEKLY FOR 4 WEEKS (500 MG WEEKLY)

REACTIONS (6)
  - Blood pressure increased [Unknown]
  - Cystitis [Unknown]
  - Headache [Unknown]
  - Rhinalgia [Unknown]
  - Nasal candidiasis [Unknown]
  - Vulvovaginal candidiasis [Unknown]
